FAERS Safety Report 5058020-2 (Version None)
Quarter: 2006Q3

REPORT INFORMATION
  Report Type: 
  Country: None (occurrence: None)
  Receive Date: 20060721
  Receipt Date: 20060515
  Transmission Date: 20061208
  Serious: No
  Sender: FDA-Public Use
  Company Number: US-GLAXOSMITHKLINE-A0605637A

PATIENT
  Age: 75 Year
  Sex: Female

DRUGS (5)
  1. AVANDIA [Suspect]
     Route: 048
     Dates: start: 20060322
  2. METFORMIN [Suspect]
     Route: 065
     Dates: start: 20060322
  3. NORVASC [Concomitant]
  4. VICODIN [Concomitant]
  5. EXTRA STRENGTH TYLENOL [Concomitant]

REACTIONS (1)
  - BLOOD GLUCOSE INCREASED [None]
